FAERS Safety Report 8900831 (Version 2)
Quarter: 2012Q4

REPORT INFORMATION
  Report Type: 
  Country: US (occurrence: US)
  Receive Date: 20121109
  Receipt Date: 20121203
  Transmission Date: 20130627
  Serious: Yes (Hospitalization, Other)
  Sender: FDA-Public Use
  Company Number: US-009507513-1210USA010373

PATIENT

DRUGS (2)
  1. MIRALAX [Suspect]
     Indication: BARIUM ENEMA
     Dosage: 17 g, UNK
     Route: 048
     Dates: start: 20120929
  2. TYLENOL WITH CODEINE #3 [Concomitant]
     Indication: EXOSTOSIS
     Route: 048

REACTIONS (3)
  - Dehydration [Unknown]
  - Pain [Unknown]
  - Fatigue [Unknown]
